FAERS Safety Report 4293253-4 (Version None)
Quarter: 2004Q1

REPORT INFORMATION
  Report Type: 
  Country: None (occurrence: None)
  Receive Date: 20040126
  Receipt Date: 20031015
  Transmission Date: 20041129
  Serious: No
  Sender: FDA-Public Use
  Company Number: USA031049939

PATIENT
  Age: 60 Year
  Sex: Female

DRUGS (4)
  1. FORTEO [Suspect]
     Indication: OSTEOPOROSIS
     Dates: start: 20030501
  2. IRON [Concomitant]
  3. VITAMIN E [Concomitant]
  4. VITAMIN CAP [Concomitant]

REACTIONS (7)
  - ABDOMINAL PAIN [None]
  - ANAEMIA [None]
  - ARTHRALGIA [None]
  - DYSPEPSIA [None]
  - HEART RATE INCREASED [None]
  - MUSCLE CRAMP [None]
  - MUSCLE TIGHTNESS [None]
